FAERS Safety Report 5898220-2 (Version None)
Quarter: 2008Q3

REPORT INFORMATION
  Report Type: 
  Country: None (occurrence: None)
  Receive Date: 20080925
  Receipt Date: 20080916
  Transmission Date: 20090109
  Serious: Yes (Other)
  Sender: FDA-Public Use
  Company Number: US-JNJFOC-20080903987

PATIENT
  Sex: Male
  Weight: 56.7 kg

DRUGS (12)
  1. INTELENCE [Suspect]
     Indication: HIV INFECTION
     Route: 048
  2. PREZISTA [Suspect]
     Indication: HIV INFECTION
     Route: 048
  3. NORVIR [Suspect]
     Indication: HIV INFECTION
     Route: 065
  4. ISENTRESS [Suspect]
     Indication: HIV INFECTION
     Route: 065
  5. REYATAZ [Suspect]
     Indication: HIV INFECTION
     Route: 065
  6. TRUVADA [Suspect]
     Indication: HIV INFECTION
     Route: 065
  7. LISINOPRIL [Concomitant]
     Indication: BLOOD PRESSURE
  8. BENADRYL [Concomitant]
     Indication: SLEEP DISORDER
  9. SULFAMETHOXAZOLE AND TRIMETHOPRIM [Concomitant]
  10. VALTREX [Concomitant]
  11. AZITHROMYCIN [Concomitant]
  12. MULTI-VITAMINS [Concomitant]

REACTIONS (6)
  - HYPERHIDROSIS [None]
  - HYPERTENSION [None]
  - LIPOHYPERTROPHY [None]
  - OSTEONECROSIS [None]
  - RASH [None]
  - WEIGHT INCREASED [None]
